FAERS Safety Report 14662007 (Version 1)
Quarter: 2018Q1

REPORT INFORMATION
  Report Type: Spontaneous
  Country: FR (occurrence: FR)
  Receive Date: 20180320
  Receipt Date: 20180320
  Transmission Date: 20180509
  Serious: Yes (Other)
  Sender: FDA-Public Use
  Company Number: FR-MERCK KGAA-2044169

PATIENT
  Sex: Male

DRUGS (1)
  1. NOVOTHYROX [Suspect]
     Active Substance: LEVOTHYROXINE SODIUM
     Indication: HYPOTHYROIDISM

REACTIONS (11)
  - Depression [None]
  - Bipolar disorder [None]
  - Social avoidant behaviour [None]
  - Pyrexia [None]
  - Fatigue [None]
  - Loss of personal independence in daily activities [None]
  - Asthenia [None]
  - Weight increased [None]
  - Palpitations [None]
  - Impatience [None]
  - Tension [None]
